FAERS Safety Report 8151005-9 (Version None)
Quarter: 2012Q1

REPORT INFORMATION
  Report Type: 
  Country: None (occurrence: None)
  Receive Date: 20120220
  Receipt Date: 20120209
  Transmission Date: 20120608
  Serious: Yes (Hospitalization)
  Sender: FDA-Public Use
  Company Number: US-BRISTOL-MYERS SQUIBB COMPANY-16372021

PATIENT
  Age: 32 Year
  Sex: Male

DRUGS (5)
  1. OMEPRAZOLE [Concomitant]
     Dates: start: 20101210
  2. LIPITOR [Concomitant]
     Dates: start: 20110630
  3. BENZTROPINE MESYLATE [Concomitant]
     Dates: start: 20100708
  4. EUCERIN [Concomitant]
     Dates: start: 20110527
  5. ARIPIPRAZOLE [Suspect]
     Indication: SCHIZOPHRENIA
     Route: 030
     Dates: start: 20110622, end: 20120105

REACTIONS (2)
  - SUICIDAL IDEATION [None]
  - PSYCHOTIC DISORDER [None]
